FAERS Safety Report 24045610 (Version 1)
Quarter: 2024Q3

REPORT INFORMATION
  Report Type: Spontaneous
  Country: US (occurrence: US)
  Receive Date: 20240703
  Receipt Date: 20240703
  Transmission Date: 20241016
  Serious: Yes (Hospitalization)
  Sender: TEVA
  Company Number: US-TEVA-VS-3214216

PATIENT
  Age: 49 Year
  Sex: Male

DRUGS (6)
  1. EPINEPHRINE [Suspect]
     Active Substance: EPINEPHRINE
     Indication: Haemodynamic instability
     Dosage: MIXED IN GLUCOSE
     Route: 065
  2. METHYLPREDNISOLONE [Suspect]
     Active Substance: METHYLPREDNISOLONE
     Indication: Prophylaxis against transplant rejection
     Route: 042
  3. METHYLPREDNISOLONE [Suspect]
     Active Substance: METHYLPREDNISOLONE
     Indication: Prophylaxis against transplant rejection
     Route: 042
  4. DOBUTAMINE [Suspect]
     Active Substance: DOBUTAMINE HYDROCHLORIDE
     Indication: Haemodynamic instability
     Dosage: MIXED IN GLUCOSE
     Route: 065
  5. DEXTROSE [Suspect]
     Active Substance: DEXTROSE\DEXTROSE MONOHYDRATE
     Indication: Vehicle solution use
     Route: 065
  6. MILRINONE [Suspect]
     Active Substance: MILRINONE
     Indication: Haemodynamic instability
     Dosage: MIXED IN GLUCOSE
     Route: 065

REACTIONS (1)
  - Insulin resistance [Recovered/Resolved]
